FAERS Safety Report 20439033 (Version 1)
Quarter: 2022Q1

REPORT INFORMATION
  Report Type: Spontaneous
  Country: US (occurrence: None)
  Receive Date: 20220204
  Receipt Date: 20220204
  Transmission Date: 20220423
  Serious: Yes (Life-Threatening, Hospitalization)
  Sender: FDA-Public Use
  Company Number: None

PATIENT
  Age: 67 Year
  Sex: Female
  Weight: 56.25 kg

DRUGS (1)
  1. ATORVASTATIN [Suspect]
     Active Substance: ATORVASTATIN
     Indication: Hypercholesterolaemia
     Dosage: FREQUENCY : DAILY;?
     Route: 048
     Dates: start: 20201201, end: 20211104

REACTIONS (9)
  - Urticaria [None]
  - Rash [None]
  - Fatigue [None]
  - Malaise [None]
  - Nausea [None]
  - Drug-induced liver injury [None]
  - Musculoskeletal chest pain [None]
  - Hypercholesterolaemia [None]
  - Magnetic resonance imaging hepatobiliary abnormal [None]

NARRATIVE: CASE EVENT DATE: 20211104
